FAERS Safety Report 8418299-3 (Version None)
Quarter: 2012Q2

REPORT INFORMATION
  Report Type: 
  Country: None (occurrence: None)
  Receive Date: 20120323
  Receipt Date: 20110722
  Transmission Date: 20120825
  Serious: Yes (Other)
  Sender: FDA-Public Use
  Company Number: 163-21880-11022157

PATIENT
  Sex: Male

DRUGS (13)
  1. NAPROX SR (NAPROXEN) [Concomitant]
  2. PANTOPRAZOLE [Concomitant]
  3. DEXAMETHASONE [Concomitant]
  4. OXYCODONE/ACETAMINOPHEN (OXYCOCET) [Concomitant]
  5. LORAZEPAM [Concomitant]
  6. REVLIMID [Suspect]
     Indication: MULTIPLE MYELOMA
     Dosage: 25 MG, QD X 21 DAYS EVERY 28 DAYS, PO
     Route: 048
     Dates: start: 20100506
  7. SENOKOT S (COLOXYL WITH SENNA) [Concomitant]
  8. ACYCLOVIR [Concomitant]
  9. DOXYCYLINE MONOHYDRATE (DOXYCYCLINE MONOHYDRATE) [Concomitant]
  10. CLONIDINE [Concomitant]
  11. PROMETHAZINE [Concomitant]
  12. FLUCONAZOLE [Concomitant]
  13. PAMIDRONATE DISODIUM [Concomitant]

REACTIONS (4)
  - RASH MACULO-PAPULAR [None]
  - RASH ERYTHEMATOUS [None]
  - PYREXIA [None]
  - DERMATITIS ACNEIFORM [None]
